FAERS Safety Report 9297373 (Version 4)
Quarter: 2013Q2

REPORT INFORMATION
  Report Type: Spontaneous
  Country: FR (occurrence: FR)
  Receive Date: 20130520
  Receipt Date: 20130621
  Transmission Date: 20140414
  Serious: Yes (Hospitalization, Other)
  Sender: FDA-Public Use
  Company Number: FR-PFIZER INC-2013141191

PATIENT
  Age: 17 Year
  Sex: Female
  Weight: 64.1 kg

DRUGS (3)
  1. CEFPODOXIME PROXETIL [Suspect]
     Dosage: ONCE
     Route: 048
  2. PARACETAMOL [Suspect]
     Dosage: 10 G OR 156 MG/KG, ONCE
     Route: 048
  3. ALPRAZOLAM [Concomitant]
     Dosage: UNK
     Route: 048

REACTIONS (4)
  - Intentional overdose [Unknown]
  - Renal failure acute [Recovered/Resolved]
  - Hepatic failure [Recovered/Resolved]
  - Hepatocellular injury [Recovered/Resolved]
